FAERS Safety Report 5324701-6 (Version None)
Quarter: 2007Q2

REPORT INFORMATION
  Report Type: 
  Country: None (occurrence: None)
  Receive Date: 20070509
  Receipt Date: 20070423
  Transmission Date: 20071010
  Serious: Yes (Death, Hospitalization)
  Sender: FDA-Public Use
  Company Number: A-CH2007-15203

PATIENT
  Age: 54 Year
  Sex: Male

DRUGS (4)
  1. TRACLEER [Suspect]
     Indication: SKIN ULCER
     Dosage: SEE IMAGE
     Route: 048
     Dates: start: 20060101
  2. CORTANCYL (PREDNISONE) [Concomitant]
  3. CYCLOPHOSPHAMIDE [Concomitant]
  4. ILOMEDINE [Concomitant]

REACTIONS (6)
  - DISEASE PROGRESSION [None]
  - LEFT VENTRICULAR FAILURE [None]
  - PERICARDITIS [None]
  - RENAL FAILURE [None]
  - RESPIRATORY FAILURE [None]
  - SCLERODERMA [None]
